FAERS Safety Report 7617190-X (Version None)
Quarter: 2011Q3

REPORT INFORMATION
  Report Type: 
  Country: None (occurrence: None)
  Receive Date: 20110718
  Receipt Date: 20110713
  Transmission Date: 20111222
  Serious: Yes (Hospitalization, Disabling, Other)
  Sender: FDA-Public Use
  Company Number: US-AMGEN-USASP2011031097

PATIENT
  Age: 29 Year
  Sex: Female
  Weight: 60 kg

DRUGS (6)
  1. NPLATE [Suspect]
     Indication: IDIOPATHIC THROMBOCYTOPENIC PURPURA
     Dosage: 10 A?G/KG, QWK
     Route: 058
     Dates: start: 20110322, end: 20110428
  2. PREDNISONE [Concomitant]
     Dosage: 40 MG, QD
     Dates: start: 20110509
  3. NORCO [Concomitant]
     Dosage: 325 MG, Q4H
     Dates: start: 20110531
  4. CORTICOSTEROIDS [Concomitant]
  5. IMMUNE GLOBULIN NOS [Concomitant]
  6. AMICAR [Concomitant]
     Dosage: 1000 MG, Q6H
     Dates: start: 20110314

REACTIONS (6)
  - DRUG INEFFECTIVE [None]
  - IMPAIRED WORK ABILITY [None]
  - MALAISE [None]
  - FATIGUE [None]
  - SINUSITIS [None]
  - DYSPNOEA EXERTIONAL [None]
